FAERS Safety Report 21327128 (Version 1)
Quarter: 2022Q3

REPORT INFORMATION
  Report Type: Spontaneous
  Country: US (occurrence: US)
  Receive Date: 20220913
  Receipt Date: 20220913
  Transmission Date: 20221027
  Serious: No
  Sender: FDA-Public Use
  Company Number: US-SA-SAC20220906000470

PATIENT
  Age: 31 Year
  Sex: Male

DRUGS (3)
  1. DUPIXENT [Suspect]
     Active Substance: DUPILUMAB
     Indication: Dermatitis atopic
     Dosage: 300 MG, QOW
     Route: 058
     Dates: end: 202106
  2. ADBRY [Suspect]
     Active Substance: TRALOKINUMAB-LDRM
  3. LOTEMAX [Concomitant]
     Active Substance: LOTEPREDNOL ETABONATE
     Dosage: UNK

REACTIONS (3)
  - Urticaria [Unknown]
  - Conjunctivitis [Not Recovered/Not Resolved]
  - Injury associated with device [Unknown]
